FAERS Safety Report 4576165-8 (Version None)
Quarter: 2005Q1

REPORT INFORMATION
  Report Type: 
  Country: None (occurrence: None)
  Receive Date: 20050204
  Receipt Date: 20050125
  Transmission Date: 20050727
  Serious: Yes (Hospitalization)
  Sender: FDA-Public Use
  Company Number: 2005019780

PATIENT
  Age: 55 Year
  Sex: Male
  Weight: 90 kg

DRUGS (5)
  1. AMLODIPINE [Suspect]
     Indication: HYPERTENSION
     Dosage: 10 MG (10 MG, 1 IN 1 D), ORAL
     Route: 048
     Dates: start: 20030901
  2. DICLOFENAC SODIUM [Suspect]
     Indication: ILL-DEFINED DISORDER
     Dosage: TOPICAL
     Route: 061
     Dates: start: 20040901, end: 20040905
  3. ACETANOCOUMAROL              (ACENOCOUMAROL) [Suspect]
     Indication: ILL-DEFINED DISORDER
     Dosage: 4 MG (4MG, 1 IN 1 D), ORAL
     Route: 048
     Dates: start: 20030901
  4. GABAPENTIN [Concomitant]
  5. ENALAPRIL MALEATE [Concomitant]

REACTIONS (7)
  - BLOOD UREA INCREASED [None]
  - GASTRIC MUCOSAL LESION [None]
  - GASTRIC VARICES [None]
  - GASTROINTESTINAL HAEMORRHAGE [None]
  - HAEMATOCRIT DECREASED [None]
  - HAEMOGLOBIN DECREASED [None]
  - LABORATORY TEST ABNORMAL [None]
